FAERS Safety Report 9401143 (Version 2)
Quarter: 2013Q3

REPORT INFORMATION
  Report Type: Spontaneous
  Country: US (occurrence: US)
  Receive Date: 20130715
  Receipt Date: 20130729
  Transmission Date: 20140515
  Serious: No
  Sender: FDA-Public Use
  Company Number: US-PFIZER INC-2013204067

PATIENT
  Age: 51 Year
  Sex: Female

DRUGS (4)
  1. CELEBREX [Suspect]
     Indication: RHEUMATOID ARTHRITIS
     Dosage: UNK
     Dates: start: 1997
  2. PREDNISONE [Suspect]
     Dosage: UNK
     Dates: start: 1986, end: 2002
  3. ENBREL [Concomitant]
     Dosage: UNK
  4. MTX [Concomitant]
     Dosage: UNK

REACTIONS (3)
  - Osteopenia [Not Recovered/Not Resolved]
  - Endocrine disorder [Not Recovered/Not Resolved]
  - Swelling face [Recovered/Resolved]
